FAERS Safety Report 11317084 (Version 1)
Quarter: 2015Q3

REPORT INFORMATION
  Report Type: Spontaneous
  Country: US (occurrence: None)
  Receive Date: 20150727
  Receipt Date: 20150727
  Transmission Date: 20151125
  Serious: No
  Sender: FDA-Public Use
  Company Number: None

PATIENT
  Age: 61 Year
  Sex: Female
  Weight: 56.7 kg

DRUGS (3)
  1. VOLTAREN [Suspect]
     Active Substance: DICLOFENAC SODIUM
     Indication: ILL-DEFINED DISORDER
     Dosage: APPLY 2-4 GRAM EVER 6 HRS AS N, EVERY 6 HRS AS NEED, APPLIED TOA SURFACE, USUALLY THE SKIN
     Route: 061
  2. VITAMIN B12 [Concomitant]
     Active Substance: CYANOCOBALAMIN
  3. VIKING [Concomitant]

REACTIONS (2)
  - Photosensitivity reaction [None]
  - Blister [None]

NARRATIVE: CASE EVENT DATE: 20150705
